FAERS Safety Report 25723669 (Version 2)
Quarter: 2025Q4

REPORT INFORMATION
  Report Type: Spontaneous
  Country: JP (occurrence: JP)
  Receive Date: 20250825
  Receipt Date: 20251104
  Transmission Date: 20260118
  Serious: Yes (Death, Hospitalization, Other)
  Sender: DAIICHI
  Company Number: JP-DSJP-DS-2025-160663-JPAA

PATIENT
  Age: 58 Year
  Sex: Female
  Weight: 72.95 kg

DRUGS (24)
  1. DATROWAY [Suspect]
     Active Substance: DATOPOTAMAB DERUXTECAN-DLNK
     Indication: Hormone receptor positive HER2 negative breast cancer
     Dosage: 4 MG/KG, ONCE EVERY 3 WK
     Route: 041
     Dates: start: 20250605, end: 20250605
  2. DATROWAY [Suspect]
     Active Substance: DATOPOTAMAB DERUXTECAN-DLNK
     Dosage: 4 MG/KG, ONCE EVERY 3 WK
     Route: 041
     Dates: start: 20250626, end: 20250626
  3. DATROWAY [Suspect]
     Active Substance: DATOPOTAMAB DERUXTECAN-DLNK
     Dosage: 4 MG/KG, ONCE EVERY 3 WK
     Route: 041
     Dates: start: 20250730, end: 20250730
  4. APREPITANT [Suspect]
     Active Substance: APREPITANT
     Indication: Antiemetic supportive care
     Dosage: 125 MG, QD
     Route: 048
     Dates: start: 20250605, end: 20250605
  5. APREPITANT [Suspect]
     Active Substance: APREPITANT
     Dosage: 80 MG, QD
     Route: 048
     Dates: start: 20250606, end: 20250606
  6. APREPITANT [Suspect]
     Active Substance: APREPITANT
     Dosage: 80 MG, QD
     Route: 048
     Dates: start: 20250607, end: 20250607
  7. NAPROXEN [Concomitant]
     Active Substance: NAPROXEN
     Indication: Tumour associated fever
     Dosage: 100 MG, TID
     Route: 048
     Dates: start: 20241127, end: 20250917
  8. DEXAMETHASONE SODIUM PHOSPHATE [Concomitant]
     Active Substance: DEXAMETHASONE SODIUM PHOSPHATE
     Indication: Antiemetic supportive care
     Dosage: 3.3 MG, QD
     Route: 042
     Dates: start: 20250605, end: 20250730
  9. POLARAMINE [Concomitant]
     Active Substance: DEXCHLORPHENIRAMINE MALEATE
     Indication: Infusion related reaction
     Dosage: 5 MG, QD
     Route: 042
     Dates: start: 20250605, end: 20250730
  10. POLARAMINE [Concomitant]
     Active Substance: DEXCHLORPHENIRAMINE MALEATE
     Indication: Prophylaxis
  11. ALOXI [Concomitant]
     Active Substance: PALONOSETRON HYDROCHLORIDE
     Indication: Antiemetic supportive care
     Dosage: 0.75 MG, QD
     Route: 042
     Dates: start: 20250605, end: 20250730
  12. FOSNETUPITANT CHLORIDE HYDROCHLORIDE [Concomitant]
     Active Substance: FOSNETUPITANT CHLORIDE HYDROCHLORIDE
     Indication: Antiemetic supportive care
     Dosage: 235 MG, QD
     Route: 042
     Dates: start: 20250730, end: 20250730
  13. HIKARI GLUCOSE INJECTION [Concomitant]
     Indication: Product used for unknown indication
     Dosage: 50 ML, BID
     Route: 065
     Dates: start: 20250605, end: 20250730
  14. DISTILLED WATER [WATER FOR INJECTION] [Concomitant]
     Indication: Product used for unknown indication
     Dosage: 5 ML, QD
     Route: 065
     Dates: start: 20250605, end: 20250730
  15. DEXTROSE [Concomitant]
     Active Substance: DEXTROSE MONOHYDRATE
     Indication: Product used for unknown indication
     Dosage: 100 ML, QD
     Route: 065
     Dates: start: 20250605, end: 20250730
  16. CALONAL [Concomitant]
     Active Substance: ACETAMINOPHEN
     Indication: Infusion related reaction
     Dosage: 500 MG, QD
     Route: 048
     Dates: start: 20250605, end: 20250730
  17. CALONAL [Concomitant]
     Active Substance: ACETAMINOPHEN
     Indication: Prophylaxis
  18. DECADRON [Concomitant]
     Active Substance: DEXAMETHASONE
     Indication: Antiemetic supportive care
     Dosage: 4 MG, QD
     Route: 048
     Dates: start: 20250606, end: 20250607
  19. URSODIOL [Concomitant]
     Active Substance: URSODIOL
     Indication: Hepatic function abnormal
     Dosage: 100 MG, TID
     Route: 048
     Dates: start: 20250605, end: 20250914
  20. OXYCODONE HYDROCHLORIDE [Concomitant]
     Active Substance: OXYCODONE HYDROCHLORIDE
     Indication: Cancer pain
     Dosage: 5 MG, BID
     Route: 048
     Dates: start: 20250529, end: 20250625
  21. OXYCODONE HYDROCHLORIDE [Concomitant]
     Active Substance: OXYCODONE HYDROCHLORIDE
     Dosage: 10 MG, BID
     Route: 048
     Dates: start: 20250626, end: 20250716
  22. METHADONE HYDROCHLORIDE [Concomitant]
     Active Substance: METHADONE HYDROCHLORIDE
     Indication: Cancer pain
     Dosage: BID (8:00 A.M.:5 MG, 8:00 P.M.:10 MG)
     Route: 048
     Dates: start: 20250717, end: 20250907
  23. HYDROMORPHONE HYDROCHLORIDE [Concomitant]
     Active Substance: HYDROMORPHONE HYDROCHLORIDE
     Indication: Product used for unknown indication
     Dosage: UNK
     Route: 048
     Dates: start: 20250717
  24. ZOLEDRONIC ACID [Concomitant]
     Active Substance: ZOLEDRONIC ACID
     Indication: Product used for unknown indication
     Dosage: 4 MG
     Route: 065
     Dates: start: 20250730

REACTIONS (7)
  - Disease progression [Fatal]
  - Acute kidney injury [Recovering/Resolving]
  - Nausea [Unknown]
  - Constipation [Unknown]
  - Vomiting [Unknown]
  - Stomatitis [Unknown]
  - Pruritus [Unknown]

NARRATIVE: CASE EVENT DATE: 20250101
